FAERS Safety Report 6094373-4 (Version None)
Quarter: 2009Q1

REPORT INFORMATION
  Report Type: 
  Country: None (occurrence: None)
  Receive Date: 20090226
  Receipt Date: 20090223
  Transmission Date: 20090719
  Serious: Yes (Death, Disabling)
  Sender: FDA-Public Use
  Company Number: JP-AVENTIS-200813832JP

PATIENT
  Age: 72 Year
  Sex: Male
  Weight: 53.4 kg

DRUGS (4)
  1. TAXOTERE [Suspect]
     Route: 041
     Dates: start: 20081030, end: 20081030
  2. TAZOCIN [Suspect]
     Indication: PNEUMONIA
     Dosage: DOSE: 2.5G/TIME
     Route: 042
     Dates: start: 20081106, end: 20081108
  3. AMINO ACID COMPLEX [Concomitant]
     Indication: ANOREXIA
     Dosage: DOSE: 500 ML/TIME
     Route: 042
     Dates: start: 20081031, end: 20081109
  4. VISCORIN [Concomitant]
     Indication: ANOREXIA
     Route: 042
     Dates: start: 20081031, end: 20081109

REACTIONS (2)
  - PNEUMONIA [None]
  - RENAL FAILURE [None]
